FAERS Safety Report 7691447-9 (Version None)
Quarter: 2011Q3

REPORT INFORMATION
  Report Type: 
  Country: None (occurrence: None)
  Receive Date: 20110818
  Receipt Date: 20110814
  Transmission Date: 20111222
  Serious: Yes (Death, Other)
  Sender: FDA-Public Use
  Company Number: PHHY2011IL72339

PATIENT
  Sex: Male

DRUGS (2)
  1. ANTIBIOTICS [Suspect]
     Indication: PNEUMONIA
  2. GLEEVEC [Suspect]
     Indication: CHRONIC MYELOID LEUKAEMIA
     Dosage: 400 MG, UNK
     Route: 048
     Dates: end: 20110701

REACTIONS (2)
  - ACCIDENTAL OVERDOSE [None]
  - PNEUMONIA [None]
